FAERS Safety Report 15724768 (Version 1)
Quarter: 2018Q4

REPORT INFORMATION
  Report Type: Spontaneous
  Country: ES (occurrence: ES)
  Receive Date: 20181214
  Receipt Date: 20181214
  Transmission Date: 20190205
  Serious: Yes (Other)
  Sender: FDA-Public Use
  Company Number: ES-NOVOPROD-637915

PATIENT
  Age: 48 Year
  Sex: Female
  Weight: 90 kg

DRUGS (4)
  1. METFORMIN [Concomitant]
     Active Substance: METFORMIN HYDROCHLORIDE
     Dosage: 850 MG
     Route: 048
  2. XOTERNA [Concomitant]
     Dosage: UNK
     Route: 005
  3. PAROXETINA                         /00830801/ [Concomitant]
     Dosage: 20 MG
     Route: 048
  4. VICTOZA [Suspect]
     Active Substance: LIRAGLUTIDE
     Indication: PRODUCT USED FOR UNKNOWN INDICATION
     Dosage: 1 DF
     Route: 058
     Dates: start: 20181018, end: 20181122

REACTIONS (3)
  - Vomiting [Recovered/Resolved]
  - Chills [Recovered/Resolved]
  - Tongue movement disturbance [Recovered/Resolved]

NARRATIVE: CASE EVENT DATE: 20181018
